FAERS Safety Report 8591265 (Version 3)
Quarter: 2013Q1

REPORT INFORMATION
  Report Type: Report from Study
  Country: US (occurrence: US)
  Receive Date: 20120601
  Receipt Date: 20130208
  Transmission Date: 20140127
  Serious: Yes (Hospitalization, Disabling)
  Sender: FDA-Public Use
  Company Number: US-JNJFOC-20120518909

PATIENT
  Age: 11 Year
  Sex: Female
  Weight: 39.1 kg

DRUGS (5)
  1. REMICADE [Suspect]
     Indication: CROHN^S DISEASE
     Route: 042
     Dates: end: 201010
  2. PREDNISONE [Concomitant]
  3. 5-ASA [Concomitant]
     Route: 048
     Dates: end: 201101
  4. AZATHIOPRINE [Concomitant]
  5. PRED-FORTE [Concomitant]

REACTIONS (1)
  - Crohn^s disease [Recovered/Resolved]
